FAERS Safety Report 9250616 (Version 1)
Quarter: 2013Q1

REPORT INFORMATION
  Report Type: Spontaneous
  Country: US (occurrence: None)
  Receive Date: 20130305
  Receipt Date: 20130305
  Transmission Date: 20140127
  Serious: Yes (Other)
  Sender: FDA-Public Use
  Company Number: 163-21880-12092943

PATIENT
  Age: 77 Year
  Sex: Female

DRUGS (6)
  1. REVLIMID [Suspect]
     Dosage: 5 MG, 3 IN 1 WK, PO
     Route: 048
     Dates: start: 20120518
  2. CELEXA (CITALOPRAM HYDROBROMIDE) (UNKNOWN) [Concomitant]
  3. NORVASC (AMLODIPINE BESILATE) [Concomitant]
  4. PEPCID AC (FAMOTIDINE) [Concomitant]
  5. VITAMINS [Concomitant]
  6. CALCIUM (CALCIUM) [Concomitant]

REACTIONS (1)
  - Diarrhoea [None]
